FAERS Safety Report 6408166-9 (Version None)
Quarter: 2009Q4

REPORT INFORMATION
  Report Type: 
  Country: None (occurrence: None)
  Receive Date: 20091021
  Receipt Date: 20091016
  Transmission Date: 20100525
  Serious: Yes (Hospitalization)
  Sender: FDA-Public Use
  Company Number: ES-EISAI INC.-E2090-00850-SPO-ES

PATIENT
  Age: 61 Year
  Sex: Female

DRUGS (2)
  1. ZONEGRAN [Suspect]
     Indication: COMPLEX PARTIAL SEIZURES
     Route: 048
     Dates: start: 20090915, end: 20090930
  2. KEPPRA [Concomitant]
     Indication: COMPLEX PARTIAL SEIZURES
     Route: 048
     Dates: start: 20060915

REACTIONS (2)
  - HEPATIC ENZYME INCREASED [None]
  - RASH [None]
